FAERS Safety Report 10645658 (Version 2)
Quarter: 2015Q2

REPORT INFORMATION
  Report Type: Report from Study
  Country: US (occurrence: US)
  Receive Date: 20141211
  Receipt Date: 20150417
  Transmission Date: 20150821
  Serious: No
  Sender: FDA-Public Use
  Company Number: US-CELGENE-USA-2014120601

PATIENT
  Age: 77 Year
  Sex: Female
  Weight: 114.6 kg

DRUGS (2)
  1. CC-4047 [Suspect]
     Active Substance: POMALIDOMIDE
     Indication: MYELOFIBROSIS
     Route: 048
     Dates: start: 20111013
  2. CC-4047 [Suspect]
     Active Substance: POMALIDOMIDE
     Route: 048
     Dates: start: 20120130

REACTIONS (1)
  - Benign breast neoplasm [Not Recovered/Not Resolved]

NARRATIVE: CASE EVENT DATE: 20140102
